FAERS Safety Report 8801692 (Version 1)
Quarter: 2012Q4

REPORT INFORMATION
  Report Type: 
  Country: US (occurrence: US)
  Receive Date: 20120921
  Receipt Date: 20120921
  Transmission Date: 20130627
  Serious: No
  Sender: FDA-Public Use
  Company Number: US-PFIZER INC-2012233403

PATIENT
  Age: 48 Year
  Sex: Female
  Weight: 81.63 kg

DRUGS (6)
  1. PRISTIQ [Suspect]
     Indication: BIPOLAR DISORDER
     Dosage: 50 mg, daily
     Route: 048
     Dates: start: 2012
  2. PRISTIQ [Interacting]
     Indication: ANXIETY
  3. PRISTIQ [Interacting]
     Indication: DEPRESSION
  4. PLAVIX [Interacting]
     Indication: THROMBOSIS
     Dosage: 75 mg, daily
     Dates: start: 201209
  5. LORTAB [Interacting]
     Indication: INTERVERTEBRAL DISC DISORDER
     Dosage: [hydrocodone bitartrate 15 mg/ paracetamol 1000 mg], every six hours
     Route: 048
  6. ZANTAC [Concomitant]
     Indication: GASTRIC DISORDER
     Dosage: 600 mg, 2x/day

REACTIONS (4)
  - Drug interaction [Unknown]
  - Agitation [Unknown]
  - Restlessness [Unknown]
  - Abnormal behaviour [Unknown]
